FAERS Safety Report 7756923-9 (Version None)
Quarter: 2011Q3

REPORT INFORMATION
  Report Type: 
  Country: None (occurrence: None)
  Receive Date: 20110916
  Receipt Date: 20110912
  Transmission Date: 20111222
  Serious: Yes (Death, Congenital Anomaly)
  Sender: FDA-Public Use
  Company Number: DK-GLAXOSMITHKLINE-B0495975B

PATIENT
  Sex: Male

DRUGS (1)
  1. ZYBAN [Suspect]
     Indication: EX-TOBACCO USER
     Route: 064

REACTIONS (3)
  - MATERNAL EXPOSURE DURING PREGNANCY [None]
  - BRAIN STEM SYNDROME [None]
  - KIDNEY MALFORMATION [None]
